FAERS Safety Report 7593405-1 (Version None)
Quarter: 2011Q3

REPORT INFORMATION
  Report Type: 
  Country: None (occurrence: None)
  Receive Date: 20110706
  Receipt Date: 20110630
  Transmission Date: 20111222
  Serious: Yes (Hospitalization, Disabling, Other)
  Sender: FDA-Public Use
  Company Number: US-MERCK-1007USA01784

PATIENT
  Age: 40 Year
  Sex: Female

DRUGS (11)
  1. VITAMIN D (UNSPECIFIED) [Concomitant]
     Indication: OSTEOPOROSIS
     Route: 065
     Dates: start: 19970101
  2. FOSAMAX [Suspect]
     Route: 048
     Dates: start: 19970401, end: 20000901
  3. FOSAMAX [Suspect]
     Indication: OSTEOPOROSIS PROPHYLAXIS
     Route: 048
     Dates: start: 19970101, end: 20100101
  4. FOSAMAX [Suspect]
     Indication: OSTEOPOROSIS
     Route: 048
     Dates: start: 19970101, end: 20100101
  5. FOSAMAX [Suspect]
     Route: 048
     Dates: start: 19970401, end: 20000901
  6. FOSAMAX [Suspect]
     Route: 048
     Dates: start: 20001001, end: 20080301
  7. CALCIUM (UNSPECIFIED) [Concomitant]
     Indication: OSTEOPOROSIS
     Route: 065
     Dates: start: 19970101
  8. AMBIEN [Concomitant]
     Indication: SLEEP DISORDER
     Route: 065
     Dates: start: 19990101
  9. FOSAMAX [Suspect]
     Route: 048
     Dates: start: 20001001, end: 20080301
  10. FOSAMAX [Suspect]
     Route: 048
     Dates: start: 20080401, end: 20100101
  11. IMITREX [Concomitant]
     Indication: HEADACHE
     Route: 065
     Dates: start: 19970101

REACTIONS (7)
  - SPINAL COMPRESSION FRACTURE [None]
  - STRESS FRACTURE [None]
  - FEMUR FRACTURE [None]
  - LOW TURNOVER OSTEOPATHY [None]
  - FIBULA FRACTURE [None]
  - OSTEOPOROSIS [None]
  - FALL [None]
